FAERS Safety Report 12762774 (Version 1)
Quarter: 2016Q3

REPORT INFORMATION
  Report Type: Spontaneous
  Country: US (occurrence: US)
  Receive Date: 20160915
  Receipt Date: 20160915
  Transmission Date: 20161109
  Serious: Yes (Hospitalization)
  Sender: FDA-Public Use
  Company Number: None

PATIENT
  Age: 48 Year
  Sex: Female

DRUGS (1)
  1. VANCOMYCIN HCL 10GM PFIZER [Suspect]
     Active Substance: VANCOMYCIN HYDROCHLORIDE
     Indication: SEPSIS
     Dosage: 1500MG EVERY 24 HOURS IV
     Route: 042
     Dates: start: 20160707, end: 20160712

REACTIONS (2)
  - Arthralgia [None]
  - Rash [None]

NARRATIVE: CASE EVENT DATE: 20160712
